FAERS Safety Report 14140827 (Version 1)
Quarter: 2017Q4

REPORT INFORMATION
  Report Type: Report from Study
  Country: UA (occurrence: UA)
  Receive Date: 20171030
  Receipt Date: 20171030
  Transmission Date: 20180321
  Serious: Yes (Other)
  Sender: FDA-Public Use
  Company Number: UA-TEVA-819667ISR

PATIENT
  Age: 5 Year
  Sex: Female
  Weight: 16.8 kg

DRUGS (6)
  1. DOXORUBICIN [Suspect]
     Active Substance: DOXORUBICIN
     Indication: EWING^S SARCOMA
     Dosage: 1,2,3 DAY OF CYCLE; LAST DOSE PRIOR TO SAE 20-OCT-2017
     Route: 042
     Dates: start: 20171017
  2. NEUPOGEN [Suspect]
     Active Substance: FILGRASTIM
     Indication: COLONY STIMULATING FACTOR PROPHYLAXIS
     Dosage: 1 DAY, 1 CYCLE; LAST DOSE PRIOR TO SAE 21-OCT-2017
     Route: 058
     Dates: start: 20171021
  3. ETOPOSID [Suspect]
     Active Substance: ETOPOSIDE
     Indication: EWING^S SARCOMA
     Dosage: 1,2,3 DAY OF CYCLE; LAST DOSE PRIOR TO SAE 20-OCT-2017
     Dates: start: 20171018
  4. VINCRISTINE [Suspect]
     Active Substance: VINCRISTINE
     Indication: EWING^S SARCOMA
     Dosage: 1 DAY OF CYCLE; LAST DOSE PRIOR TO SAE 17-OCT-2017
     Route: 042
     Dates: start: 20171017
  5. LONQUEX [Suspect]
     Active Substance: LIPEGFILGRASTIM
     Indication: COLONY STIMULATING FACTOR PROPHYLAXIS
     Route: 058
  6. IFOSFAMIDE. [Suspect]
     Active Substance: IFOSFAMIDE
     Indication: EWING^S SARCOMA
     Dosage: 1,2,3 DAY OF CYCLE; LAST DOSE PRIOR TO SAE 19-OCT-2017
     Route: 042
     Dates: start: 20171017

REACTIONS (2)
  - Neutropenia [Not Recovered/Not Resolved]
  - Leukopenia [Not Recovered/Not Resolved]

NARRATIVE: CASE EVENT DATE: 20171024
